FAERS Safety Report 4959413-1 (Version None)
Quarter: 2006Q1

REPORT INFORMATION
  Report Type: 
  Country: None (occurrence: None)
  Receive Date: 20060331
  Receipt Date: 20051205
  Transmission Date: 20060701
  Serious: Yes (Hospitalization)
  Sender: FDA-Public Use
  Company Number: US-MERCK-0512USA00831

PATIENT
  Age: 73 Year
  Sex: Female
  Weight: 61 kg

DRUGS (11)
  1. VIOXX [Suspect]
     Indication: OSTEOARTHRITIS
     Route: 048
     Dates: start: 20010101, end: 20030201
  2. VIOXX [Suspect]
     Indication: PAIN
     Route: 048
     Dates: start: 20010101, end: 20030201
  3. CALAN [Concomitant]
     Indication: HYPERTENSION
     Route: 065
     Dates: start: 19950101, end: 20021101
  4. VERAPAMIL [Concomitant]
     Indication: HYPERTENSION
     Route: 065
     Dates: start: 20020118, end: 20021001
  5. ASPIRIN [Concomitant]
     Indication: PROPHYLAXIS
     Route: 065
     Dates: start: 20021101
  6. FOSAMAX [Concomitant]
     Indication: OSTEOPOROSIS
     Route: 048
  7. MECLIZINE [Concomitant]
     Indication: NAUSEA
     Route: 065
  8. TOPROL-XL [Concomitant]
     Indication: CARDIAC DISORDER
     Route: 065
  9. ZYRTEC [Concomitant]
     Indication: HYPERSENSITIVITY
     Route: 065
  10. NEOMYCIN [Concomitant]
     Indication: BACTERIAL INFECTION
     Route: 065
  11. POLYMYXIN B SULFATE (AEROSPORIN) [Concomitant]
     Indication: BACTERIAL INFECTION
     Route: 065

REACTIONS (6)
  - BLOOD CHOLESTEROL INCREASED [None]
  - CEREBROVASCULAR ACCIDENT [None]
  - CORONARY ARTERY DISEASE [None]
  - GASTROOESOPHAGEAL REFLUX DISEASE [None]
  - GLOBAL AMNESIA [None]
  - HEADACHE [None]
